FAERS Safety Report 10380704 (Version 1)
Quarter: 2014Q3

REPORT INFORMATION
  Report Type: Spontaneous
  Country: AU (occurrence: None)
  Receive Date: 20140808
  Receipt Date: 20140808
  Transmission Date: 20150326
  Serious: Yes (Hospitalization, Other)
  Sender: FDA-Public Use
  Company Number: 2014AU006634

PATIENT
  Age: 72 Year
  Sex: Male

DRUGS (1)
  1. ELIGARD [Suspect]
     Active Substance: LEUPROLIDE ACETATE
     Indication: PROSTATE CANCER
     Dosage: 30 MG, EVERY 4 MONTHS
     Dates: start: 20140326

REACTIONS (5)
  - Urine output decreased [None]
  - Drug dose omission [None]
  - Paraesthesia [None]
  - Emphysema [None]
  - Hypoaesthesia [None]

NARRATIVE: CASE EVENT DATE: 2014
